FAERS Safety Report 19724645 (Version 5)
Quarter: 2022Q2

REPORT INFORMATION
  Report Type: Report from Study
  Country: US (occurrence: US)
  Receive Date: 20210820
  Receipt Date: 20220603
  Transmission Date: 20220721
  Serious: No
  Sender: FDA-Public Use
  Company Number: NVSC2021US186262

PATIENT
  Sex: Male

DRUGS (2)
  1. COSENTYX [Suspect]
     Active Substance: SECUKINUMAB
     Indication: Psoriasis
     Dosage: 300 MG, QMO
     Route: 058
  2. COSENTYX [Suspect]
     Active Substance: SECUKINUMAB
     Indication: Psoriatic arthropathy

REACTIONS (6)
  - Lower respiratory tract congestion [Unknown]
  - Dyspnoea [Unknown]
  - Cough [Unknown]
  - Symptom recurrence [Unknown]
  - Product use issue [Unknown]
  - Inappropriate schedule of product administration [Unknown]
